FAERS Safety Report 9059975 (Version 1)
Quarter: 2013Q1

REPORT INFORMATION
  Report Type: Spontaneous
  Country: US (occurrence: None)
  Receive Date: 20130207
  Receipt Date: 20130207
  Transmission Date: 20140127
  Serious: Yes (Hospitalization)
  Sender: FDA-Public Use
  Company Number: None

PATIENT
  Sex: Male
  Weight: 80 kg

DRUGS (2)
  1. DOCETAXEL (TAXOTERE) [Suspect]
  2. IRINOTECAN [Suspect]

REACTIONS (7)
  - Dehydration [None]
  - Diarrhoea [None]
  - Dyspnoea [None]
  - Atrial fibrillation [None]
  - Neutropenia [None]
  - Sepsis [None]
  - Respiratory failure [None]
